FAERS Safety Report 18116035 (Version 4)
Quarter: 2023Q2

REPORT INFORMATION
  Report Type: Spontaneous
  Country: US (occurrence: US)
  Receive Date: 20200805
  Receipt Date: 20230418
  Transmission Date: 20230722
  Serious: Yes (Other)
  Sender: FDA-Public Use
  Company Number: US-GILEAD-2020-0488543

PATIENT
  Sex: Male
  Weight: 61.224 kg

DRUGS (62)
  1. VIREAD [Suspect]
     Active Substance: TENOFOVIR DISOPROXIL FUMARATE
     Indication: HIV infection
     Dosage: UNK
     Route: 048
     Dates: start: 2001, end: 2008
  2. TRUVADA [Suspect]
     Active Substance: EMTRICITABINE\TENOFOVIR DISOPROXIL FUMARATE
     Indication: HIV infection
     Dosage: UNK
     Route: 048
     Dates: start: 20140903, end: 20150825
  3. ATRIPLA [Suspect]
     Active Substance: EFAVIRENZ\EMTRICITABINE\TENOFOVIR DISOPROXIL FUMARATE
     Indication: HIV infection
     Dosage: UNK
     Route: 048
     Dates: start: 20081229, end: 20100403
  4. ACETAMINOPHEN [Concomitant]
     Active Substance: ACETAMINOPHEN
  5. ACTONEL [Concomitant]
     Active Substance: RISEDRONATE SODIUM
  6. AMITRIPTYLINE [Concomitant]
     Active Substance: AMITRIPTYLINE
  7. AMOX+AC CLAV SAN [AMOXICILLIN SODIUM;CLAVULANATE POTASSIUM] [Concomitant]
  8. ASPIRIN [Concomitant]
     Active Substance: ASPIRIN
  9. AZITHROMYCIN [Concomitant]
     Active Substance: AZITHROMYCIN
  10. BENZONATATE [Concomitant]
     Active Substance: BENZONATATE
  11. BUSPIRONE [Concomitant]
     Active Substance: BUSPIRONE HYDROCHLORIDE
  12. BUTRANS [Concomitant]
     Active Substance: BUPRENORPHINE
  13. CARISOPRODOL [Concomitant]
     Active Substance: CARISOPRODOL
  14. CELECOXIB [Concomitant]
     Active Substance: CELECOXIB
  15. CEPHALEXIN [Concomitant]
     Active Substance: CEPHALEXIN
  16. CIPROFLOXACIN [Concomitant]
     Active Substance: CIPROFLOXACIN
  17. CITALOPRAM [Concomitant]
     Active Substance: CITALOPRAM HYDROBROMIDE
  18. CLOPIDOGREL [Concomitant]
     Active Substance: CLOPIDOGREL BISULFATE
  19. CYCLOBENZAPRINE [Concomitant]
     Active Substance: CYCLOBENZAPRINE
  20. DICYCLOMINE [Concomitant]
     Active Substance: DICYCLOMINE HYDROCHLORIDE
  21. DULOXETINE [Concomitant]
     Active Substance: DULOXETINE
  22. ESCITALOPRAM [Concomitant]
     Active Substance: ESCITALOPRAM OXALATE
  23. FLUCONAZOLE [Concomitant]
     Active Substance: FLUCONAZOLE
  24. FLUVIRIN A [Concomitant]
  25. GABAPENTIN [Concomitant]
     Active Substance: GABAPENTIN
  26. HYDROCODONE [Concomitant]
     Active Substance: HYDROCODONE
  27. HYDROMORPHONE [Concomitant]
     Active Substance: HYDROMORPHONE
  28. HYDROXYZINE [Concomitant]
     Active Substance: HYDROXYZINE HYDROCHLORIDE
  29. IBUPROFEN [Concomitant]
     Active Substance: IBUPROFEN
  30. ISENTRESS [Concomitant]
     Active Substance: RALTEGRAVIR POTASSIUM
  31. JUBLIA [Concomitant]
     Active Substance: EFINACONAZOLE
  32. KETOROLAC [Concomitant]
     Active Substance: KETOROLAC TROMETHAMINE
  33. LEVAQUIN [Concomitant]
     Active Substance: LEVOFLOXACIN
  34. LEVOFLOXACIN [Concomitant]
     Active Substance: LEVOFLOXACIN
  35. LEXAPRO [Concomitant]
     Active Substance: ESCITALOPRAM OXALATE
  36. LIDOCAINE [Concomitant]
     Active Substance: LIDOCAINE
  37. LORAZEPAM [Concomitant]
     Active Substance: LORAZEPAM
  38. MELOXICAM [Concomitant]
     Active Substance: MELOXICAM
  39. METHYLPREDNISOLONE [Concomitant]
     Active Substance: METHYLPREDNISOLONE
  40. MOBISYL [Concomitant]
     Active Substance: TROLAMINE SALICYLATE
  41. NAPROXEN [Concomitant]
     Active Substance: NAPROXEN
  42. NORVIR [Concomitant]
     Active Substance: RITONAVIR
  43. OSELTAMIVIR [Concomitant]
     Active Substance: OSELTAMIVIR
  44. OXYCODONE [Concomitant]
     Active Substance: OXYCODONE
  45. PEG 3350 [Concomitant]
     Active Substance: POLYETHYLENE GLYCOL 3350
  46. PNEUMOVAX 23 [Concomitant]
     Active Substance: PNEUMOCOCCAL VACCINE, POLYVALENT 23
  47. PREDNISONE [Concomitant]
     Active Substance: PREDNISONE
  48. PREZISTA [Concomitant]
     Active Substance: DARUNAVIR ETHANOLATE
  49. PROMETHAZINE [Concomitant]
     Active Substance: PROMETHAZINE HYDROCHLORIDE
  50. Q-TUSSIN [Concomitant]
     Active Substance: GUAIFENESIN
  51. QUETIAPINE [Concomitant]
     Active Substance: QUETIAPINE
  52. SILENOR [Concomitant]
     Active Substance: DOXEPIN HYDROCHLORIDE
  53. TRAMADOL [Concomitant]
     Active Substance: TRAMADOL
  54. TRAZODONE [Concomitant]
     Active Substance: TRAZODONE HYDROCHLORIDE
  55. TRIUMEQ [Concomitant]
     Active Substance: ABACAVIR SULFATE\DOLUTEGRAVIR SODIUM\LAMIVUDINE
  56. VALTREX [Concomitant]
     Active Substance: VALACYCLOVIR HYDROCHLORIDE
  57. VENTOLIN [Concomitant]
     Active Substance: ALBUTEROL SULFATE
  58. VITAMIN C [Concomitant]
     Active Substance: ASCORBIC ACID
  59. DICLOFENAC POTASSIUM [Concomitant]
     Active Substance: DICLOFENAC POTASSIUM
  60. WAL-ITIN [Concomitant]
     Active Substance: LORATADINE
  61. ZOLPIDEM [Concomitant]
     Active Substance: ZOLPIDEM TARTRATE
  62. AFLURIA NOS [Concomitant]
     Active Substance: INFLUENZA VIRUS VACCINE TRIVALENT TYPE A+B AFLURIA

REACTIONS (8)
  - Osteoporosis [Not Recovered/Not Resolved]
  - Multiple fractures [Not Recovered/Not Resolved]
  - Bone demineralisation [Unknown]
  - Emotional distress [Not Recovered/Not Resolved]
  - Anxiety [Not Recovered/Not Resolved]
  - Anhedonia [Not Recovered/Not Resolved]
  - Osteopenia [Not Recovered/Not Resolved]
  - Pain [Not Recovered/Not Resolved]

NARRATIVE: CASE EVENT DATE: 20090101
